FAERS Safety Report 5137087-7 (Version None)
Quarter: 2006Q4

REPORT INFORMATION
  Report Type: 
  Country: None (occurrence: None)
  Receive Date: 20061030
  Receipt Date: 20060921
  Transmission Date: 20070319
  Serious: Yes (Hospitalization)
  Sender: FDA-Public Use
  Company Number: FI-AVENTIS-200619856GDDC

PATIENT
  Age: 61 Year
  Sex: Female

DRUGS (8)
  1. ARAVA [Suspect]
     Indication: RHEUMATOID ARTHRITIS
     Route: 048
     Dates: start: 20060401, end: 20060830
  2. BISOPROLOL FUMARATE [Concomitant]
     Route: 048
  3. KALCIPOS-D [Concomitant]
     Dosage: DOSE: 500 MG/5 UG
     Route: 048
  4. TREXAN [Concomitant]
     Route: 058
     Dates: start: 20060401, end: 20060801
  5. METHOTREXATE SODIUM [Concomitant]
     Dosage: DOSE: UNK
     Dates: start: 20060218, end: 20060830
  6. PREDNISOLONE [Concomitant]
     Dates: start: 20020218, end: 20020301
  7. PREDNISOLONE [Concomitant]
     Dates: start: 20020301, end: 20020917
  8. PREDNISOLONE [Concomitant]
     Dates: start: 20020917, end: 20060830

REACTIONS (4)
  - BRONCHIECTASIS [None]
  - LUNG DISORDER [None]
  - LUNG INFILTRATION [None]
  - RESPIRATORY TRACT INFECTION [None]
